FAERS Safety Report 11812299 (Version 1)
Quarter: 2015Q4

REPORT INFORMATION
  Report Type: Spontaneous
  Country: US (occurrence: US)
  Receive Date: 20151208
  Receipt Date: 20151208
  Transmission Date: 20160305
  Serious: No
  Sender: FDA-Public Use
  Company Number: US-LPDUSPRD-20150267

PATIENT
  Sex: Male

DRUGS (1)
  1. VENOFER [Suspect]
     Active Substance: IRON SUCROSE
     Dosage: 2CC/IV/LOADING DOSE
     Route: 042
     Dates: start: 20141223, end: 20141223

REACTIONS (1)
  - Hypersensitivity [Recovered/Resolved]
